FAERS Safety Report 6467291-7 (Version None)
Quarter: 2009Q4

REPORT INFORMATION
  Report Type: 
  Country: None (occurrence: None)
  Receive Date: 20091202
  Receipt Date: 20091120
  Transmission Date: 20100525
  Serious: Yes (Hospitalization)
  Sender: FDA-Public Use
  Company Number: AU-GENENTECH-282953

PATIENT
  Sex: Female

DRUGS (3)
  1. TRASTUZUMAB [Suspect]
     Indication: BREAST CANCER
     Dosage: UNK
     Route: 042
  2. DOCETAXEL [Suspect]
     Indication: BREAST CANCER
     Dosage: UNK
     Route: 042
     Dates: end: 20081125
  3. GEMCITABINE [Suspect]
     Indication: BREAST CANCER
     Dosage: UNK
     Route: 042
     Dates: end: 20081125

REACTIONS (3)
  - DEHYDRATION [None]
  - FATIGUE [None]
  - INTERSTITIAL LUNG DISEASE [None]
